FAERS Safety Report 5727871-0 (Version None)
Quarter: 2008Q2

REPORT INFORMATION
  Report Type: 
  Country: None (occurrence: None)
  Receive Date: 20080505
  Receipt Date: 20080423
  Transmission Date: 20081010
  Serious: Yes (Other)
  Sender: FDA-Public Use
  Company Number: US-PFIZER INC-2007035471

PATIENT
  Sex: Female
  Weight: 68 kg

DRUGS (10)
  1. SUTENT [Suspect]
     Route: 048
  2. FOLIC ACID [Concomitant]
     Route: 048
  3. ZOMETA [Concomitant]
     Route: 042
  4. TYLENOL [Concomitant]
     Route: 048
  5. VITAMIN B-12 [Concomitant]
     Route: 048
  6. LEVOXYL [Concomitant]
     Route: 048
  7. EVISTA [Concomitant]
     Route: 048
  8. VITAMIN CAP [Concomitant]
     Dosage: TEXT:1 TAB DAILY
     Route: 048
  9. ACIDOPHILUS [Concomitant]
     Dosage: TEXT:1 TAB 2 TIMES A DAY
     Route: 048
  10. IMODIUM A-D [Concomitant]

REACTIONS (3)
  - COLITIS ISCHAEMIC [None]
  - DIARRHOEA [None]
  - GASTROINTESTINAL HAEMORRHAGE [None]
